FAERS Safety Report 14754091 (Version 2)
Quarter: 2018Q2

REPORT INFORMATION
  Report Type: Spontaneous
  Country: GB (occurrence: IT)
  Receive Date: 20180412
  Receipt Date: 20180424
  Transmission Date: 20180711
  Serious: Yes (Hospitalization)
  Sender: FDA-Public Use
  Company Number: GB-SA-2018SA094258

PATIENT
  Age: 85 Year
  Sex: Female

DRUGS (14)
  1. CLOPIDOGREL BISULFATE. [Interacting]
     Active Substance: CLOPIDOGREL BISULFATE
     Dosage: 75 MG OS BID
     Route: 048
  2. CARVEDILOL. [Interacting]
     Active Substance: CARVEDILOL
     Dosage: 12.5 MG OS QD
     Route: 048
  3. HYDROCHLOROTHIAZIDE/IRBESARTAN [Suspect]
     Active Substance: HYDROCHLOROTHIAZIDE\IRBESARTAN
     Dosage: 300/25 MG QD
     Route: 048
  4. IRON [Suspect]
     Active Substance: IRON
     Dosage: 80 MG OS QS
     Route: 048
  5. HYDROCHLOROTHIAZIDE. [Suspect]
     Active Substance: HYDROCHLOROTHIAZIDE
     Dosage: NON-AZ PRODUCT
     Route: 048
  6. LEVOTHYROXINE. [Suspect]
     Active Substance: LEVOTHYROXINE
     Dosage: 50 MCG PER INHALATION
     Route: 048
  7. PAROXETINE. [Interacting]
     Active Substance: PAROXETINE
     Route: 048
  8. QUETIAPINE FUMARATE. [Suspect]
     Active Substance: QUETIAPINE FUMARATE
     Route: 048
  9. OMEPRAZOLE. [Interacting]
     Active Substance: OMEPRAZOLE
     Route: 048
  10. CARVEDILOL. [Interacting]
     Active Substance: CARVEDILOL
     Dosage: 12.5 MG OS QD
     Route: 048
  11. VENLAFAXINE [Interacting]
     Active Substance: VENLAFAXINE HYDROCHLORIDE
     Route: 048
  12. IRBESARTAN. [Suspect]
     Active Substance: IRBESARTAN
     Route: 048
  13. ATORVASTATIN [Suspect]
     Active Substance: ATORVASTATIN
     Route: 048
  14. BUPROPION. [Interacting]
     Active Substance: BUPROPION
     Route: 048

REACTIONS (6)
  - Labelled drug-drug interaction medication error [Unknown]
  - Cervical vertebral fracture [None]
  - Fall [Unknown]
  - Hypotension [Unknown]
  - Dehydration [Unknown]
  - Drug interaction [Unknown]
